FAERS Safety Report 10064501 (Version 4)
Quarter: 2014Q2

REPORT INFORMATION
  Report Type: Spontaneous
  Country: FI (occurrence: FI)
  Receive Date: 20140408
  Receipt Date: 20140606
  Transmission Date: 20141212
  Serious: Yes (Other)
  Sender: FDA-Public Use
  Company Number: FI-ASTELLAS-2014EU003512

PATIENT
  Age: 63 Year
  Sex: Female

DRUGS (6)
  1. BETMIGA [Suspect]
     Indication: MICTURITION URGENCY
     Route: 048
     Dates: start: 20140217, end: 20140409
  2. BETMIGA [Suspect]
     Indication: HYPERTONIC BLADDER
     Route: 048
     Dates: start: 20140228, end: 20140327
  3. COZAAR [Concomitant]
     Indication: PRODUCT USED FOR UNKNOWN INDICATION
     Route: 065
  4. THYROXIN [Concomitant]
     Indication: PRODUCT USED FOR UNKNOWN INDICATION
     Route: 065
  5. CALCI-CHEW [Concomitant]
     Indication: PRODUCT USED FOR UNKNOWN INDICATION
     Route: 065
  6. VAGIFEM [Concomitant]
     Indication: PRODUCT USED FOR UNKNOWN INDICATION
     Route: 065

REACTIONS (7)
  - Peripheral swelling [Recovered/Resolved]
  - Abdominal distension [Recovered/Resolved]
  - Abdominal distension [Recovered/Resolved]
  - Papule [Not Recovered/Not Resolved]
  - Eyelid oedema [Recovered/Resolved]
  - Dry skin [Unknown]
  - Inappropriate schedule of drug administration [Unknown]
